FAERS Safety Report 4879614-0 (Version None)
Quarter: 2006Q1

REPORT INFORMATION
  Report Type: 
  Country: None (occurrence: None)
  Receive Date: 20060113
  Receipt Date: 20050202
  Transmission Date: 20060701
  Serious: No
  Sender: FDA-Public Use
  Company Number: US-BRISTOL-MYERS SQUIBB COMPANY-12846275

PATIENT
  Age: 36 Year
  Sex: Female

DRUGS (8)
  1. IFEX [Suspect]
     Indication: SYSTEMIC LUPUS ERYTHEMATOSUS
     Route: 042
     Dates: start: 20050202, end: 20050202
  2. MESNA [Concomitant]
     Indication: PREMEDICATION
  3. ZOFRAN [Concomitant]
     Indication: PREMEDICATION
  4. PROCARDIA [Concomitant]
  5. PREDNISONE [Concomitant]
  6. PLAQUENIL [Concomitant]
  7. PROTONIX [Concomitant]
  8. CENTRUM [Concomitant]

REACTIONS (1)
  - EXTRAVASATION [None]
